FAERS Safety Report 23050067 (Version 2)
Quarter: 2023Q4

REPORT INFORMATION
  Report Type: Spontaneous
  Country: US (occurrence: US)
  Receive Date: 20231010
  Receipt Date: 20231013
  Transmission Date: 20240109
  Serious: No
  Sender: FDA-Public Use
  Company Number: US-PFIZER INC-202300319537

PATIENT
  Age: 68 Year
  Sex: Female
  Weight: 47.17 kg

DRUGS (1)
  1. NICOTROL [Suspect]
     Active Substance: NICOTINE
     Indication: Smoking cessation therapy
     Dosage: UNK (1 INHALER FOR USE 2-3 TIMES A DAY)

REACTIONS (2)
  - Drug ineffective [Unknown]
  - Dysphonia [Unknown]
